FAERS Safety Report 11575549 (Version 1)
Quarter: 2015Q3

REPORT INFORMATION
  Report Type: Spontaneous
  Country: US (occurrence: US)
  Receive Date: 20150930
  Receipt Date: 20150930
  Transmission Date: 20151125
  Serious: No
  Sender: FDA-Public Use
  Company Number: US-BIOGENIDEC-2015BI132214

PATIENT
  Sex: Female

DRUGS (1)
  1. AVONEX [Suspect]
     Active Substance: INTERFERON BETA-1A
     Indication: MULTIPLE SCLEROSIS
     Route: 030
     Dates: start: 20140719

REACTIONS (6)
  - Diarrhoea [Unknown]
  - Therapy cessation [Unknown]
  - Abasia [Not Recovered/Not Resolved]
  - Vomiting [Unknown]
  - Feeding disorder [Not Recovered/Not Resolved]
  - Hypersomnia [Unknown]
